FAERS Safety Report 15938278 (Version 1)
Quarter: 2019Q1

REPORT INFORMATION
  Report Type: Spontaneous
  Country: US (occurrence: US)
  Receive Date: 20190208
  Receipt Date: 20190208
  Transmission Date: 20190417
  Serious: No
  Sender: FDA-Public Use
  Company Number: US-ROCHE-2200875

PATIENT
  Age: 58 Year
  Sex: Female
  Weight: 64.92 kg

DRUGS (14)
  1. CARAFATE [Concomitant]
     Active Substance: SUCRALFATE
     Dosage: ONE TABLET 4 TIMES A DAY ON AN EMPTY STOMACH 1 HOUR BEFORE MEALS
     Route: 048
  2. CEFUROXIME AXETIL. [Concomitant]
     Active Substance: CEFUROXIME AXETIL
     Route: 048
     Dates: start: 20180730
  3. SINGULAIR [Concomitant]
     Active Substance: MONTELUKAST SODIUM
     Dosage: IN EVENING
     Route: 048
  4. PREDNISONE. [Concomitant]
     Active Substance: PREDNISONE
     Dosage: PREDNISONE TAPER ;ONGOING: NO
     Route: 065
     Dates: start: 20180925
  5. XOLAIR [Suspect]
     Active Substance: OMALIZUMAB
     Route: 058
     Dates: start: 20180910, end: 20181008
  6. AMITRIPTYLINE [Concomitant]
     Active Substance: AMITRIPTYLINE
     Dosage: AT BEDTIME
     Route: 048
  7. DEXILANT [Concomitant]
     Active Substance: DEXLANSOPRAZOLE
     Dosage: BIPHASE DELAYED RELEASE
     Route: 048
  8. DYMISTA [Concomitant]
     Active Substance: AZELASTINE HYDROCHLORIDE\FLUTICASONE PROPIONATE
     Dosage: 137-50 MCG/SPRAY, ONE SPRAY IN EACH NOSTRIL
     Route: 045
  9. PREDNISONE. [Concomitant]
     Active Substance: PREDNISONE
     Dosage: 6 TABLETS X 6 DAYS, 4 TABLETS X 4 DAYS, 2 TABLETS X 4 DAYS, 1 TABLET X 2 DAY THEN 1/2 TABLET X 2 DAY
     Route: 048
     Dates: start: 20181008
  10. RIZATRIPTAN. [Concomitant]
     Active Substance: RIZATRIPTAN
     Dosage: DO NOT EXEED 30 MG IN 24 HOURS
     Route: 048
  11. XOLAIR [Suspect]
     Active Substance: OMALIZUMAB
     Indication: ASTHMA
     Dosage: LAST SHOT ON 08-OCT-2018 ;ONGOING: UNKNOWN
     Route: 058
     Dates: start: 20181008
  12. BREO ELLIPTA [Concomitant]
     Active Substance: FLUTICASONE FUROATE\VILANTEROL TRIFENATATE
     Dosage: INHALATIONAL BLISTER WITH DEVICE 200-25 MCG/DOSE
     Route: 065
  13. PROAIR HFA [Concomitant]
     Active Substance: ALBUTEROL SULFATE
     Dosage: 90 MCG / ACTUATION INHALATION
     Route: 065
  14. METOPROLOL TARTRATE. [Concomitant]
     Active Substance: METOPROLOL TARTRATE
     Route: 048

REACTIONS (7)
  - Chills [Recovering/Resolving]
  - Cough [Recovering/Resolving]
  - Pain in extremity [Recovering/Resolving]
  - Urticaria [Recovering/Resolving]
  - Pyrexia [Recovering/Resolving]
  - Dyspnoea [Recovering/Resolving]
  - Pruritus [Recovering/Resolving]

NARRATIVE: CASE EVENT DATE: 20181011
